FAERS Safety Report 14672806 (Version 2)
Quarter: 2018Q2

REPORT INFORMATION
  Report Type: Other
  Country: CA (occurrence: CA)
  Receive Date: 20180323
  Receipt Date: 20180422
  Transmission Date: 20180711
  Serious: Yes (Other)
  Sender: FDA-Public Use
  Company Number: CA-APOTEX-2018AP008179

PATIENT
  Age: 65 Year
  Sex: Male

DRUGS (1)
  1. SALBUTAMOL [Suspect]
     Active Substance: ALBUTEROL
     Indication: PRODUCT USED FOR UNKNOWN INDICATION
     Dosage: UNK
     Route: 065

REACTIONS (8)
  - Heart rate irregular [Unknown]
  - Cartilage injury [Unknown]
  - Prostate cancer [Unknown]
  - Nasal polypectomy [Unknown]
  - Sinusitis [Unknown]
  - Nasal polyps [Unknown]
  - Pain [Unknown]
  - Pneumonitis [Unknown]
